FAERS Safety Report 8291244-X (Version None)
Quarter: 2012Q2

REPORT INFORMATION
  Report Type: 
  Country: None (occurrence: None)
  Receive Date: 20120417
  Receipt Date: 20120410
  Transmission Date: 20120825
  Serious: Yes (Hospitalization)
  Sender: FDA-Public Use
  Company Number: US-US-EMD SERONO, INC.-7105720

PATIENT
  Sex: Female
  Weight: 99 kg

DRUGS (6)
  1. REBIF [Suspect]
     Route: 058
     Dates: start: 20120104, end: 20120106
  2. INHALER [Concomitant]
  3. REBIF [Suspect]
     Indication: MULTIPLE SCLEROSIS
     Route: 058
     Dates: start: 20111221
  4. REBIF [Suspect]
     Route: 058
  5. REBIF [Suspect]
     Route: 058
  6. TYLENOL (CAPLET) [Concomitant]
     Indication: PREMEDICATION

REACTIONS (2)
  - INITIAL INSOMNIA [None]
  - PULMONARY EMBOLISM [None]
